FAERS Safety Report 5259524-X (Version None)
Quarter: 2007Q1

REPORT INFORMATION
  Report Type: 
  Country: None (occurrence: None)
  Receive Date: 20070306
  Receipt Date: 20070220
  Transmission Date: 20070707
  Serious: Yes (Hospitalization)
  Sender: FDA-Public Use
  Company Number: T200700197

PATIENT
  Age: 58 Year
  Sex: Male
  Weight: 72.6 kg

DRUGS (3)
  1. METHADONE HCL [Suspect]
     Indication: BACK PAIN
     Dosage: 30 MG, TID, ORAL
     Route: 048
     Dates: start: 20070101, end: 20070122
  2. PROVIGIL [Suspect]
     Indication: SLEEP APNOEA SYNDROME
     Dosage: QD,ORAL
     Route: 048
     Dates: start: 20061201, end: 20070122
  3. METHADONE HCL [Concomitant]

REACTIONS (5)
  - DRUG INEFFECTIVE [None]
  - DRUG INTERACTION [None]
  - DRUG LEVEL DECREASED [None]
  - DRUG WITHDRAWAL SYNDROME [None]
  - TONIC CLONIC MOVEMENTS [None]
